FAERS Safety Report 8347734-4 (Version None)
Quarter: 2012Q2

REPORT INFORMATION
  Report Type: 
  Country: None (occurrence: None)
  Receive Date: 20120509
  Receipt Date: 20120426
  Transmission Date: 20120825
  Serious: Yes (Death, Hospitalization)
  Sender: FDA-Public Use
  Company Number: DE-ELI_LILLY_AND_COMPANY-DE201203005044

PATIENT
  Age: 86 Year
  Sex: Female

DRUGS (12)
  1. ARLEVERT [Concomitant]
  2. ERGOCALCIFEROL [Concomitant]
  3. ACETAMINOPHEN [Concomitant]
     Dosage: 500 MG, UNK
  4. MORPHINE [Concomitant]
     Dosage: 10 MG, BID
  5. FORTEO [Suspect]
     Indication: OSTEOPOROSIS
     Dosage: UNK, QD
     Route: 058
     Dates: start: 20110602, end: 20120314
  6. VITAMIN D [Concomitant]
  7. METOCLOPRAMIDE [Concomitant]
  8. ANALGESICS [Concomitant]
     Dosage: UNK, OTHER
  9. OPIUM/NALOXONE TAB [Concomitant]
  10. TORSEMIDE [Concomitant]
     Dosage: 10 MG, UNK
  11. OMEPRAZOLE [Concomitant]
     Dosage: 20 MG, UNK
  12. AMITRIPTYLINE HCL [Concomitant]
     Dosage: 25 MG, UNK

REACTIONS (3)
  - URINARY TRACT INFECTION [None]
  - RENAL FAILURE [None]
  - CARDIAC FAILURE [None]
